FAERS Safety Report 17104819 (Version 2)
Quarter: 2020Q4

REPORT INFORMATION
  Report Type: Spontaneous
  Country: US (occurrence: US)
  Receive Date: 20191203
  Receipt Date: 20201116
  Transmission Date: 20210113
  Serious: No
  Sender: FDA-Public Use
  Company Number: US-SHIRE-US201941638

PATIENT
  Age: 22 Year
  Sex: Male

DRUGS (6)
  1. ADVATE [Suspect]
     Active Substance: ANTIHEMOPHILIC FACTOR, HUMAN RECOMBINANT
     Dosage: 2248 INTERNATIONAL UNIT
     Route: 042
  2. ADVATE [Suspect]
     Active Substance: ANTIHEMOPHILIC FACTOR, HUMAN RECOMBINANT
     Dosage: 2248 INTERNATIONAL UNIT
     Route: 042
  3. ADVATE [Suspect]
     Active Substance: ANTIHEMOPHILIC FACTOR, HUMAN RECOMBINANT
     Indication: PRODUCT USED FOR UNKNOWN INDICATION
     Dosage: 2097 INTERNATIONAL UNIT PER DECILITRE, 1X/DAY:QD
     Route: 065
  4. ADVATE [Suspect]
     Active Substance: ANTIHEMOPHILIC FACTOR, HUMAN RECOMBINANT
     Dosage: 2248 INTERNATIONAL UNIT
     Route: 042
  5. ADVATE [Suspect]
     Active Substance: ANTIHEMOPHILIC FACTOR, HUMAN RECOMBINANT
     Indication: PRODUCT USED FOR UNKNOWN INDICATION
     Dosage: 2097 INTERNATIONAL UNIT PER DECILITRE, 1X/DAY:QD
     Route: 065
  6. ADVATE [Suspect]
     Active Substance: ANTIHEMOPHILIC FACTOR, HUMAN RECOMBINANT
     Indication: PRODUCT USED FOR UNKNOWN INDICATION
     Dosage: 2097 INTERNATIONAL UNIT PER DECILITRE, 1X/DAY:QD
     Route: 065

REACTIONS (5)
  - Splenic injury [Recovered/Resolved]
  - Road traffic accident [Recovered/Resolved]
  - Joint dislocation [Recovered/Resolved]
  - Treatment noncompliance [Unknown]
  - Skin laceration [Recovered/Resolved]

NARRATIVE: CASE EVENT DATE: 20191122
